FAERS Safety Report 8207600-1 (Version None)
Quarter: 2012Q1

REPORT INFORMATION
  Report Type: 
  Country: None (occurrence: None)
  Receive Date: 20120314
  Receipt Date: 20120309
  Transmission Date: 20120608
  Serious: Yes (Other)
  Sender: FDA-Public Use
  Company Number: US-BAYER-2012-004881

PATIENT
  Age: 34 Year
  Sex: Female

DRUGS (4)
  1. BETASERON [Suspect]
     Indication: MULTIPLE SCLEROSIS
     Dosage: 8 MIU, QOD
     Route: 058
     Dates: start: 20111205, end: 20120118
  2. IBUPROFEN (ADVIL) [Concomitant]
  3. CALCIUM [Concomitant]
  4. VITAMIN D [Concomitant]

REACTIONS (7)
  - MALAISE [None]
  - VOMITING [None]
  - WEIGHT DECREASED [None]
  - INJECTION SITE REACTION [None]
  - APHAGIA [None]
  - NAUSEA [None]
  - ABDOMINAL DISCOMFORT [None]
